FAERS Safety Report 8605916-8 (Version None)
Quarter: 2012Q3

REPORT INFORMATION
  Report Type: 
  Country: None (occurrence: None)
  Receive Date: 20120820
  Receipt Date: 19900208
  Transmission Date: 20120928
  Serious: Yes (Other)
  Sender: FDA-Public Use
  Company Number: US-ROCHE-1097641

PATIENT
  Sex: Male

DRUGS (2)
  1. ACTIVASE [Suspect]
     Indication: ACUTE MYOCARDIAL INFARCTION
  2. LOPRESSOR [Concomitant]
     Route: 048

REACTIONS (5)
  - CHEST PAIN [None]
  - TOOTH SOCKET HAEMORRHAGE [None]
  - HAEMATOMA [None]
  - VENTRICULAR EXTRASYSTOLES [None]
  - GINGIVAL BLEEDING [None]
